FAERS Safety Report 7009946-1 (Version None)
Quarter: 2010Q3

REPORT INFORMATION
  Report Type: 
  Country: None (occurrence: None)
  Receive Date: 20100921
  Receipt Date: 20100908
  Transmission Date: 20110219
  Serious: Yes (Hospitalization)
  Sender: FDA-Public Use
  Company Number: 2010-3101

PATIENT
  Sex: Female

DRUGS (2)
  1. DYSPORT [Suspect]
     Indication: SKIN COSMETIC PROCEDURE
     Dosage: SINGLE CYCLE
     Dates: start: 20100831, end: 20100831
  2. BOTULINUM TOXIN TYPE A [Suspect]

REACTIONS (4)
  - DIPLOPIA [None]
  - DIZZINESS [None]
  - SPEECH DISORDER [None]
  - VISION BLURRED [None]
